FAERS Safety Report 13895893 (Version 2)
Quarter: 2018Q2

REPORT INFORMATION
  Report Type: Spontaneous
  Country: CN (occurrence: CN)
  Receive Date: 20170823
  Receipt Date: 20180523
  Transmission Date: 20180711
  Serious: Yes (Other)
  Sender: FDA-Public Use
  Company Number: CN-ACCORD-057551

PATIENT
  Age: 57 Year
  Sex: Female

DRUGS (5)
  1. PALONOSETRON/PALONOSETRON HYDROCHLORIDE [Concomitant]
     Dates: start: 20160228
  2. CAPECITABINE. [Suspect]
     Active Substance: CAPECITABINE
     Indication: COLON CANCER STAGE III
     Dosage: 1.5 G BID, DAYS 1-14, CYCLICAL
     Route: 048
     Dates: start: 20160228, end: 20160304
  3. OXALIPLATIN. [Concomitant]
     Active Substance: OXALIPLATIN
     Indication: COLON CANCER STAGE III
     Dosage: 200 MG, DAY 1
     Route: 042
     Dates: start: 20160228
  4. METOCLOPRAMIDE. [Concomitant]
     Active Substance: METOCLOPRAMIDE
     Dates: start: 20160228
  5. PANTOPRAZOLE [Concomitant]
     Active Substance: PANTOPRAZOLE
     Dates: start: 20160228

REACTIONS (2)
  - Psychiatric symptom [Recovered/Resolved]
  - Hyperammonaemia [Recovered/Resolved]

NARRATIVE: CASE EVENT DATE: 20160228
